FAERS Safety Report 8537779-3 (Version None)
Quarter: 2012Q3

REPORT INFORMATION
  Report Type: 
  Country: None (occurrence: None)
  Receive Date: 20120725
  Receipt Date: 20120718
  Transmission Date: 20120928
  Serious: Yes (Other)
  Sender: FDA-Public Use
  Company Number: JP-VERTEX PHARMACEUTICALS INC.-AE-2012-010803

PATIENT
  Age: 47 Year
  Sex: Male

DRUGS (4)
  1. TELAVIC (TELAPREVIR) [Suspect]
     Indication: HEPATITIS C
     Route: 048
     Dates: start: 20120514, end: 20120519
  2. PEGINTERFERON ALFA-2B [Concomitant]
     Route: 058
     Dates: start: 20120514, end: 20120519
  3. RIBAVIRIN [Concomitant]
     Route: 048
     Dates: start: 20120514, end: 20120519
  4. ALLOPURINOL [Concomitant]
     Route: 048
     Dates: start: 20120518

REACTIONS (1)
  - RENAL IMPAIRMENT [None]
